FAERS Safety Report 5145743-X (Version None)
Quarter: 2006Q4

REPORT INFORMATION
  Report Type: 
  Country: None (occurrence: None)
  Receive Date: 20060915
  Receipt Date: 20060511
  Transmission Date: 20070319
  Serious: No
  Sender: FDA-Public Use
  Company Number: 2006RL000170

PATIENT
  Age: 49 Year
  Sex: Male
  Weight: 90.7194 kg

DRUGS (5)
  1. OMACOR [Suspect]
     Indication: BLOOD TRIGLYCERIDES
     Dosage: QD;PO
     Route: 048
     Dates: start: 20060509
  2. OMACOR [Suspect]
     Indication: HIGH DENSITY LIPOPROTEIN
     Dosage: QD;PO
     Route: 048
     Dates: start: 20060509
  3. METAMUCIL [Concomitant]
  4. PROBUCOL [Concomitant]
  5. ACETYLSALICYLIC ACID SRT [Concomitant]

REACTIONS (1)
  - ABDOMINAL DISTENSION [None]
